FAERS Safety Report 23641536 (Version 1)
Quarter: 2024Q1

REPORT INFORMATION
  Report Type: Other
  Country: US (occurrence: None)
  Receive Date: 20240318
  Receipt Date: 20240318
  Transmission Date: 20240410
  Serious: Yes (Death)
  Sender: FDA-Public Use
  Company Number: US-ROCHE-3526934

PATIENT
  Age: 89 Year
  Sex: Male

DRUGS (2)
  1. HEMLIBRA [Suspect]
     Active Substance: EMICIZUMAB-KXWH
     Indication: Coagulation factor deficiency
     Dosage: INJECT 1ML (150MG) SUBCUTANEOUSLY EVERY 7 DAY(S)
     Route: 058
  2. HEMLIBRA [Suspect]
     Active Substance: EMICIZUMAB-KXWH
     Indication: Hypoprothrombinaemia

REACTIONS (1)
  - Death [Fatal]
